FAERS Safety Report 5097838-7 (Version None)
Quarter: 2006Q3

REPORT INFORMATION
  Report Type: 
  Country: None (occurrence: None)
  Receive Date: 20060905
  Receipt Date: 20060822
  Transmission Date: 20061208
  Serious: Yes (Life-Threatening, Hospitalization, Other)
  Sender: FDA-Public Use
  Company Number: 02100-EUR-06-0038

PATIENT
  Age: 77 Year
  Sex: Female

DRUGS (8)
  1. CILOSTAZOL [Suspect]
     Indication: PERIPHERAL VASCULAR DISORDER
     Dosage: 200 MG ORAL
     Route: 048
     Dates: start: 20050609, end: 20060302
  2. ASPIRIN [Concomitant]
  3. CO-COMADOL [Concomitant]
  4. HYPROMELLOSE [Concomitant]
  5. LEVOTHYROXINE SODIUM [Concomitant]
  6. PERINDOPRIL TERT-BUTYLAMINE [Concomitant]
  7. QUININE SULFATE [Concomitant]
  8. SIMVASTATIN [Concomitant]

REACTIONS (2)
  - HAEMATEMESIS [None]
  - OESOPHAGEAL ULCER [None]
